FAERS Safety Report 9624423 (Version 1)
Quarter: 2013Q4

REPORT INFORMATION
  Report Type: Spontaneous
  Country: DE (occurrence: DE)
  Receive Date: 20131015
  Receipt Date: 20131015
  Transmission Date: 20140711
  Serious: Yes (Death)
  Sender: FDA-Public Use
  Company Number: DE-GLAXOSMITHKLINE-D0081389A

PATIENT
  Sex: 0

DRUGS (1)
  1. MALARONE [Suspect]
     Route: 048

REACTIONS (1)
  - Liver injury [Fatal]
